FAERS Safety Report 22768746 (Version 4)
Quarter: 2023Q4

REPORT INFORMATION
  Report Type: Spontaneous
  Country: US (occurrence: US)
  Receive Date: 20230731
  Receipt Date: 20231115
  Transmission Date: 20240110
  Serious: No
  Sender: FDA-Public Use
  Company Number: US-PFIZER INC-202300261232

PATIENT
  Age: 74 Year
  Sex: Female
  Weight: 72.57 kg

DRUGS (7)
  1. NURTEC ODT [Suspect]
     Active Substance: RIMEGEPANT SULFATE
     Indication: Migraine
     Dosage: UNK, ALTERNATE DAY
     Dates: start: 202210
  2. NURTEC ODT [Suspect]
     Active Substance: RIMEGEPANT SULFATE
     Dosage: 75 MG, ALTERNATE DAY (PLACED UNDER THE TONGUE AND IT)
     Route: 060
     Dates: start: 20230319
  3. NURTEC ODT [Suspect]
     Active Substance: RIMEGEPANT SULFATE
     Dosage: ALTERNATE DAY (EVERY OTHER DAY)
     Dates: start: 202107, end: 20230928
  4. DILANTIN [Concomitant]
     Active Substance: PHENYTOIN
     Indication: Epilepsy
     Dosage: 250 MG, 2X/DAY (125MG CAPSULES FOUR A DAY; TWO IN THE MORNING AND TWO AT NIGHT)
     Dates: start: 1998
  5. DILANTIN [Concomitant]
     Active Substance: PHENYTOIN
     Dosage: 200 MG, 2X/DAY
     Dates: start: 1990
  6. RABEPRAZOLE [Concomitant]
     Active Substance: RABEPRAZOLE
     Dosage: 40 AT NIGHT
     Dates: start: 2010
  7. RABEPRAZOLE [Concomitant]
     Active Substance: RABEPRAZOLE
     Dosage: UNK
     Dates: start: 2020, end: 20231003

REACTIONS (3)
  - Dyspepsia [Not Recovered/Not Resolved]
  - Abdominal pain upper [Not Recovered/Not Resolved]
  - Asthenia [Unknown]

NARRATIVE: CASE EVENT DATE: 20230715
